FAERS Safety Report 17566438 (Version 1)
Quarter: 2020Q1

REPORT INFORMATION
  Report Type: Spontaneous
  Country: US (occurrence: US)
  Receive Date: 20200320
  Receipt Date: 20200320
  Transmission Date: 20200409
  Serious: Yes (Other)
  Sender: FDA-Public Use
  Company Number: US-AMNEAL PHARMACEUTICALS-2020-AMRX-00812

PATIENT
  Age: 71 Year
  Sex: Female
  Weight: 67.13 kg

DRUGS (1)
  1. RYTARY [Suspect]
     Active Substance: CARBIDOPA\LEVODOPA
     Indication: PRODUCT USED FOR UNKNOWN INDICATION
     Dosage: 4 CAPSULES, TID
     Route: 048

REACTIONS (2)
  - Weight decreased [Unknown]
  - Hernia [Unknown]

NARRATIVE: CASE EVENT DATE: 20200220
